FAERS Safety Report 24314907 (Version 1)
Quarter: 2024Q3

REPORT INFORMATION
  Report Type: Spontaneous
  Country: US (occurrence: US)
  Receive Date: 20240913
  Receipt Date: 20240913
  Transmission Date: 20241016
  Serious: Yes (Disabling, Other)
  Sender: AUROBINDO
  Company Number: US-MLMSERVICE-20240903-PI179961-00117-1

PATIENT
  Age: 49 Year
  Sex: Male

DRUGS (5)
  1. DEXAMETHASONE [Suspect]
     Active Substance: DEXAMETHASONE
     Indication: Pain management
     Dosage: 10 MILLIGRAM
     Route: 008
  2. DEXAMETHASONE [Suspect]
     Active Substance: DEXAMETHASONE
     Indication: Steroid therapy
  3. LIDOCAINE [Concomitant]
     Active Substance: LIDOCAINE
     Indication: Pain management
     Dosage: 10 MILLIGRAM
     Route: 008
  4. SALINE [Concomitant]
     Active Substance: SODIUM CHLORIDE
     Indication: Pain management
     Dosage: 3 MILLILITER
     Route: 008
  5. IOHEXOL [Concomitant]
     Active Substance: IOHEXOL
     Indication: Pain management
     Dosage: UNK
     Route: 008

REACTIONS (5)
  - Eating disorder [Recovered/Resolved]
  - Hiccups [Recovered/Resolved]
  - Dyspnoea [Recovered/Resolved]
  - Gastrooesophageal reflux disease [Recovered/Resolved]
  - Nausea [Recovered/Resolved]
